FAERS Safety Report 6359098-6 (Version None)
Quarter: 2009Q3

REPORT INFORMATION
  Report Type: 
  Country: None (occurrence: None)
  Receive Date: 20090917
  Receipt Date: 20070328
  Transmission Date: 20100115
  Serious: Yes (Hospitalization, Disabling)
  Sender: FDA-Public Use
  Company Number: US-ASTRAZENECA-2006UW03010

PATIENT
  Age: 54 Year
  Sex: Female
  Weight: 81.2 kg

DRUGS (12)
  1. SEROQUEL [Suspect]
     Indication: PARANOIA
     Dosage: 100-300 MG
     Route: 048
     Dates: start: 20021031
  2. SEROQUEL [Suspect]
     Indication: ANXIETY
     Dosage: 100-300 MG
     Route: 048
     Dates: start: 20021031
  3. SEROQUEL [Suspect]
     Indication: SLEEP DISORDER
     Dosage: 100-300 MG
     Route: 048
     Dates: start: 20021031
  4. SEROQUEL [Suspect]
     Route: 048
     Dates: start: 20021101
  5. SEROQUEL [Suspect]
     Route: 048
     Dates: start: 20021101
  6. SEROQUEL [Suspect]
     Route: 048
     Dates: start: 20021101
  7. SEROQUEL [Suspect]
     Route: 048
     Dates: start: 20060728
  8. SEROQUEL [Suspect]
     Route: 048
     Dates: start: 20060728
  9. SEROQUEL [Suspect]
     Route: 048
     Dates: start: 20060728
  10. GEODON [Concomitant]
     Dates: start: 20050708
  11. LAMICTAL [Concomitant]
     Dosage: 100-200 MG
     Dates: start: 20021031
  12. LEXAPRO [Concomitant]
     Dates: start: 20021031

REACTIONS (8)
  - ARTHRALGIA [None]
  - BACK PAIN [None]
  - BIPOLAR I DISORDER [None]
  - BLOOD CHOLESTEROL INCREASED [None]
  - DIABETES MELLITUS [None]
  - GLUCOSE TOLERANCE IMPAIRED [None]
  - INJURY [None]
  - WEIGHT INCREASED [None]
